FAERS Safety Report 16767873 (Version 1)
Quarter: 2019Q3

REPORT INFORMATION
  Report Type: Spontaneous
  Country: JP (occurrence: JP)
  Receive Date: 20190903
  Receipt Date: 20190903
  Transmission Date: 20191005
  Serious: Yes (Other)
  Sender: FDA-Public Use
  Company Number: JP-SA-2019SA242142

PATIENT
  Age: 70 Year
  Sex: Male

DRUGS (3)
  1. CAPECITABINE. [Concomitant]
     Active Substance: CAPECITABINE
     Dosage: UNK UNK, UNK
     Route: 065
  2. ELPLAT [Suspect]
     Active Substance: OXALIPLATIN
     Indication: COLON CANCER
     Dosage: UNK UNK, QD
     Route: 041
     Dates: start: 20190628, end: 20190628
  3. ELPLAT [Suspect]
     Active Substance: OXALIPLATIN
     Dosage: UNK UNK, QD
     Route: 041
     Dates: start: 20190809, end: 20190809

REACTIONS (1)
  - Protein-losing gastroenteropathy [Not Recovered/Not Resolved]

NARRATIVE: CASE EVENT DATE: 20190809
